FAERS Safety Report 11661102 (Version 2)
Quarter: 2015Q4

REPORT INFORMATION
  Report Type: Spontaneous
  Country: DE (occurrence: DE)
  Receive Date: 20151026
  Receipt Date: 20151111
  Transmission Date: 20160304
  Serious: Yes (Hospitalization)
  Sender: FDA-Public Use
  Company Number: DE-TEVA-602061GER

PATIENT
  Age: 32 Year
  Sex: Female

DRUGS (3)
  1. LAMOTRIGINE. [Concomitant]
     Active Substance: LAMOTRIGINE
     Indication: EPILEPSY
     Route: 065
  2. CLOBAZAM [Concomitant]
     Active Substance: CLOBAZAM
     Indication: EPILEPSY
     Route: 065
  3. VALPROIC ACID. [Suspect]
     Active Substance: VALPROIC ACID
     Indication: EPILEPSY
     Route: 065

REACTIONS (2)
  - Sternal fracture [Unknown]
  - Osteopenia [Unknown]
